FAERS Safety Report 7309249-1 (Version None)
Quarter: 2011Q1

REPORT INFORMATION
  Report Type: 
  Country: None (occurrence: None)
  Receive Date: 20110211
  Receipt Date: 20110110
  Transmission Date: 20110831
  Serious: Yes (Disabling, Other)
  Sender: FDA-Public Use
  Company Number: 2010SP028818

PATIENT
  Age: 27 Year
  Sex: Female

DRUGS (2)
  1. PREVPAC [Concomitant]
  2. DESLORATADINE AND PSEUDOEPHEDRINE SULFATE [Suspect]
     Indication: EAR DISCOMFORT
     Dosage: PO
     Route: 048
     Dates: start: 20100501, end: 20100507

REACTIONS (27)
  - INADEQUATE ANALGESIA [None]
  - HYPERACUSIS [None]
  - TRIGEMINAL NEURALGIA [None]
  - PRODUCT MEASURED POTENCY ISSUE [None]
  - QUALITY OF LIFE DECREASED [None]
  - DEPRESSION [None]
  - SENSORY LOSS [None]
  - PANIC DISORDER [None]
  - PARAESTHESIA [None]
  - HYPERSENSITIVITY [None]
  - TINNITUS [None]
  - HYPOAESTHESIA [None]
  - PRODUCT QUALITY ISSUE [None]
  - IMPAIRED WORK ABILITY [None]
  - RHINITIS [None]
  - NASOPHARYNGITIS [None]
  - MUSCLE TIGHTNESS [None]
  - MENTAL DISORDER [None]
  - INNER EAR DISORDER [None]
  - EAR DISORDER [None]
  - EAR DISCOMFORT [None]
  - TRIGEMINAL NERVE DISORDER [None]
  - NERVOUS SYSTEM DISORDER [None]
  - ANXIETY [None]
  - ACOUSTIC NEURITIS [None]
  - EAR PAIN [None]
  - THINKING ABNORMAL [None]
